FAERS Safety Report 4676961-2 (Version None)
Quarter: 2005Q2

REPORT INFORMATION
  Report Type: 
  Country: None (occurrence: None)
  Receive Date: 20050526
  Receipt Date: 20050511
  Transmission Date: 20051028
  Serious: Yes (Hospitalization)
  Sender: FDA-Public Use
  Company Number: DSA_26415_2005

PATIENT
  Sex: Female

DRUGS (3)
  1. CARDIZEM [Suspect]
     Dosage: 240 MG Q DAY PO
     Route: 048
  2. NITROSTAT [Concomitant]
  3. BUSPIRONE HCL [Concomitant]

REACTIONS (4)
  - CHEST DISCOMFORT [None]
  - EMOTIONAL DISTRESS [None]
  - FLUSHING [None]
  - HEART RATE INCREASED [None]
